FAERS Safety Report 4680959-8 (Version None)
Quarter: 2005Q2

REPORT INFORMATION
  Report Type: 
  Country: None (occurrence: None)
  Receive Date: 20050601
  Receipt Date: 20050530
  Transmission Date: 20051028
  Serious: Yes (Life-Threatening, Hospitalization)
  Sender: FDA-Public Use
  Company Number: NLWYE330811JAN05

PATIENT
  Age: 74 Year
  Sex: Female

DRUGS (2)
  1. EFFEXOR XR [Suspect]
     Indication: MAJOR DEPRESSION
     Dosage: 75 MG 1X PER 1 DAY ORAL; 75 MG 2X PER DAY 1 DAY ORAL; 600 MG 1X PER 1 DAY
     Route: 048
     Dates: start: 20040601, end: 20040614
  2. EFFEXOR XR [Suspect]
     Indication: MAJOR DEPRESSION
     Dosage: 75 MG 1X PER 1 DAY ORAL; 75 MG 2X PER DAY 1 DAY ORAL; 600 MG 1X PER 1 DAY
     Route: 048
     Dates: start: 20040615, end: 20041201

REACTIONS (3)
  - CARDIAC FAILURE [None]
  - CARDIOMEGALY [None]
  - FLUID RETENTION [None]
